FAERS Safety Report 24074594 (Version 1)
Quarter: 2024Q3

REPORT INFORMATION
  Report Type: Spontaneous
  Country: US (occurrence: US)
  Receive Date: 20240710
  Receipt Date: 20240710
  Transmission Date: 20241017
  Serious: No
  Sender: PIERRE FABRE MEDICAMENT
  Company Number: US-PFM-2024-00326

PATIENT
  Age: 0 Year
  Weight: 2.9 kg

DRUGS (1)
  1. HEMANGEOL [Suspect]
     Active Substance: PROPRANOLOL HYDROCHLORIDE
     Indication: Intra-abdominal haemangioma
     Dosage: 1.5 ML, BID (2/DAY)
     Route: 048
     Dates: start: 20240102, end: 20240108

REACTIONS (2)
  - Hypothermia [Recovered/Resolved]
  - Vomiting [Recovered/Resolved]

NARRATIVE: CASE EVENT DATE: 20240107
